FAERS Safety Report 21714576 (Version 1)
Quarter: 2022Q4

REPORT INFORMATION
  Report Type: Spontaneous
  Country: US (occurrence: None)
  Receive Date: 20221210
  Receipt Date: 20221210
  Transmission Date: 20230112
  Serious: Yes (Hospitalization)
  Sender: FDA-Public Use
  Company Number: None

PATIENT
  Age: 36 Year
  Sex: Female
  Weight: 75.6 kg

DRUGS (4)
  1. CLINDAMYCIN [Suspect]
     Active Substance: CLINDAMYCIN
     Indication: Pharyngitis streptococcal
     Dosage: FREQUENCY : TWICE A DAY;?
     Route: 048
     Dates: start: 20221204, end: 20221206
  2. CORLANOR [Concomitant]
     Active Substance: IVABRADINE HYDROCHLORIDE
  3. ADVIL [Concomitant]
     Active Substance: IBUPROFEN
  4. TYLENOL [Concomitant]
     Active Substance: ACETAMINOPHEN

REACTIONS (10)
  - Nausea [None]
  - Dizziness [None]
  - Asthenia [None]
  - Nervousness [None]
  - Paraesthesia [None]
  - Mania [None]
  - Delirium [None]
  - Mania [None]
  - Suicidal behaviour [None]
  - Therapy cessation [None]

NARRATIVE: CASE EVENT DATE: 20221207
